FAERS Safety Report 4644664-6 (Version None)
Quarter: 2005Q2

REPORT INFORMATION
  Report Type: 
  Country: None (occurrence: None)
  Receive Date: 20050422
  Receipt Date: 20050406
  Transmission Date: 20051028
  Serious: No
  Sender: FDA-Public Use
  Company Number: A-US2005-09291

PATIENT
  Age: 54 Year
  Sex: Female
  Weight: 88 kg

DRUGS (15)
  1. TRACLEER [Suspect]
     Indication: PULMONARY HYPERTENSION
     Dosage: 62.5 MG, BID, ORAL
     Route: 048
     Dates: start: 20050101, end: 20050220
  2. COUMADIN [Concomitant]
  3. AGRYLIN [Concomitant]
  4. PROTONIX [Concomitant]
  5. INSULIN [Concomitant]
  6. GLIPIZIDE [Concomitant]
  7. TOPROL-XL [Concomitant]
  8. IMDUR [Concomitant]
  9. TORSEMIDE (TORASEMIDE) [Concomitant]
  10. ALTACE [Concomitant]
  11. SPIRONOLACTONE [Concomitant]
  12. MORPHINE SULFATE [Concomitant]
  13. WELLBUTRIN SR [Concomitant]
  14. ELAVIL [Concomitant]
  15. PERCOCET (PARACETAMOL, OXYCODONE TEREPHTHALATE, OXYCODONE HYDROCHLORID [Concomitant]

REACTIONS (9)
  - BLINDNESS TRANSIENT [None]
  - CATARACT [None]
  - DIABETIC RETINOPATHY [None]
  - DISEASE PROGRESSION [None]
  - INTERNATIONAL NORMALISED RATIO INCREASED [None]
  - PROTHROMBIN TIME PROLONGED [None]
  - RETINAL DETACHMENT [None]
  - TREATMENT NONCOMPLIANCE [None]
  - VITREOUS HAEMORRHAGE [None]
